FAERS Safety Report 7899371-3 (Version None)
Quarter: 2011Q4

REPORT INFORMATION
  Report Type: 
  Country: None (occurrence: None)
  Receive Date: 20111107
  Receipt Date: 20110913
  Transmission Date: 20120403
  Serious: No
  Sender: FDA-Public Use
  Company Number: US-AMGEN-USASP2011046994

PATIENT
  Sex: Male

DRUGS (2)
  1. TREXALL [Concomitant]
     Dates: start: 20110201
  2. ENBREL [Suspect]
     Indication: RHEUMATOID ARTHRITIS
     Dates: start: 20110628

REACTIONS (3)
  - HEADACHE [None]
  - ARTHRALGIA [None]
  - FATIGUE [None]
